FAERS Safety Report 5335041-3 (Version None)
Quarter: 2007Q2

REPORT INFORMATION
  Report Type: 
  Country: None (occurrence: None)
  Receive Date: 20070525
  Receipt Date: 20070523
  Transmission Date: 20071010
  Serious: Yes (Other)
  Sender: FDA-Public Use
  Company Number: A0652650A

PATIENT
  Age: 49 Year
  Sex: Female

DRUGS (6)
  1. AVANDIA [Suspect]
     Dosage: 8MG PER DAY
     Route: 048
     Dates: start: 19990101
  2. AMARYL [Suspect]
     Dosage: 2MG PER DAY
     Route: 048
     Dates: start: 19990101
  3. IBUPROFEN [Suspect]
     Indication: ARTHRITIS
     Dosage: 600MG AS REQUIRED
     Route: 048
     Dates: start: 20040101
  4. AMARYL [Concomitant]
  5. QUININE SULFATE [Concomitant]
  6. IBUPROFEN [Concomitant]

REACTIONS (6)
  - CHOKING [None]
  - DRY MOUTH [None]
  - DYSARTHRIA [None]
  - DYSPHAGIA [None]
  - SALIVA ALTERED [None]
  - THROAT IRRITATION [None]
